FAERS Safety Report 8887355 (Version 1)
Quarter: 2012Q4

REPORT INFORMATION
  Report Type: 
  Country: US (occurrence: None)
  Receive Date: 20121101
  Receipt Date: 20121101
  Transmission Date: 20130627
  Serious: No
  Sender: FDA-Public Use
  Company Number: None

PATIENT
  Age: 81 Year
  Sex: Female
  Weight: 62.2 kg

DRUGS (1)
  1. PHENERGAN [Suspect]
     Indication: NAUSEA
     Dosage: 12.5 mg diluted in 9cc. of NS once IV push
     Route: 042
     Dates: start: 20120321

REACTIONS (3)
  - Somnolence [None]
  - Confusional state [None]
  - Somnolence [None]
